FAERS Safety Report 9550214 (Version 2)
Quarter: 2013Q3

REPORT INFORMATION
  Report Type: Report from Study
  Country: BR (occurrence: BR)
  Receive Date: 20130924
  Receipt Date: 20130924
  Transmission Date: 20140515
  Serious: Yes (Other)
  Sender: FDA-Public Use
  Company Number: BR-ROCHE-1257122

PATIENT
  Sex: Male
  Weight: 98 kg

DRUGS (6)
  1. RIBAVIRIN [Suspect]
     Indication: HEPATITIS C
     Dosage: 5 IN THE MORNINGS AND 4 IN THE EVENING.
     Route: 048
  2. INTERFERON ALFA-2A [Suspect]
     Indication: HEPATITIS C
     Route: 042
     Dates: start: 2009
  3. PEGINTRON [Suspect]
     Indication: HEPATITIS C
     Route: 058
     Dates: start: 201010, end: 201109
  4. MODURETIC [Concomitant]
     Indication: NEPHROLITHIASIS
     Route: 065
  5. OMEPRAZOLE [Concomitant]
     Indication: GASTRITIS
  6. ALLOPURINOL [Concomitant]
     Indication: NEPHROLITHIASIS
     Route: 065

REACTIONS (4)
  - Liver disorder [Unknown]
  - Depressive symptom [Unknown]
  - Body temperature decreased [Unknown]
  - Alopecia [Unknown]
